FAERS Safety Report 8576611-9 (Version None)
Quarter: 2012Q3

REPORT INFORMATION
  Report Type: 
  Country: None (occurrence: None)
  Receive Date: 20120807
  Receipt Date: 20120730
  Transmission Date: 20120928
  Serious: Yes (Hospitalization, Disabling, Other)
  Sender: FDA-Public Use
  Company Number: US-009507513-1110USA01788

PATIENT

DRUGS (5)
  1. VITAMIN D [Concomitant]
  2. CALCIUM (UNSPECIFIED) [Concomitant]
  3. FOSAMAX [Suspect]
     Indication: PROPHYLAXIS
     Dosage: 70 MG, QW
     Route: 048
     Dates: start: 20020401
  4. MK-9278 [Concomitant]
  5. FOSAMAX [Suspect]
     Dosage: 70 MG, QW
     Route: 048
     Dates: start: 20090227, end: 20101001

REACTIONS (45)
  - OSTEOARTHRITIS [None]
  - SPINAL OSTEOARTHRITIS [None]
  - HYPERTENSION [None]
  - TREATMENT NONCOMPLIANCE [None]
  - PAIN [None]
  - PANIC DISORDER [None]
  - BASAL CELL CARCINOMA [None]
  - LYMPHADENOPATHY [None]
  - FOOT FRACTURE [None]
  - ARTHROSCOPY [None]
  - CIRRHOSIS ALCOHOLIC [None]
  - UPPER RESPIRATORY TRACT INFECTION [None]
  - FALL [None]
  - LUNG INFILTRATION [None]
  - HEADACHE [None]
  - ALCOHOL ABUSE [None]
  - ANXIETY [None]
  - RADIUS FRACTURE [None]
  - SYNCOPE [None]
  - CLAVICLE FRACTURE [None]
  - WEIGHT INCREASED [None]
  - EXOSTOSIS [None]
  - LIMB ASYMMETRY [None]
  - LUNG CONSOLIDATION [None]
  - NAUSEA [None]
  - GASTROOESOPHAGEAL REFLUX DISEASE [None]
  - OSTEOPENIA [None]
  - VITAMIN B12 DEFICIENCY [None]
  - COUGH [None]
  - DIARRHOEA [None]
  - HYPONATRAEMIA [None]
  - SUICIDE ATTEMPT [None]
  - INFLUENZA [None]
  - LIVER FUNCTION TEST ABNORMAL [None]
  - DEPRESSION [None]
  - LACTIC ACIDOSIS [None]
  - POST-TRAUMATIC STRESS DISORDER [None]
  - OSTEOPOROSIS [None]
  - FEMORAL NECK FRACTURE [None]
  - SPLENECTOMY [None]
  - ALCOHOLISM [None]
  - ASPARTATE AMINOTRANSFERASE INCREASED [None]
  - BONE CYST [None]
  - FIBULA FRACTURE [None]
  - HEPATIC STEATOSIS [None]
